FAERS Safety Report 5461080-8 (Version None)
Quarter: 2007Q3

REPORT INFORMATION
  Report Type: 
  Country: None (occurrence: None)
  Receive Date: 20070820
  Receipt Date: 20070508
  Transmission Date: 20080115
  Serious: No
  Sender: FDA-Public Use
  Company Number: TPA2007A00570

PATIENT
  Sex: 0

DRUGS (1)
  1. ROZEREM [Suspect]

REACTIONS (1)
  - MUSCLE SPASMS [None]
